FAERS Safety Report 12263859 (Version 1)
Quarter: 2016Q2

REPORT INFORMATION
  Report Type: Spontaneous
  Country: US (occurrence: US)
  Receive Date: 20160413
  Receipt Date: 20160413
  Transmission Date: 20160815
  Serious: No
  Sender: FDA-Public Use
  Company Number: US-JNJFOC-20160329428

PATIENT
  Age: 44 Year
  Sex: Female

DRUGS (1)
  1. TYLENOL EXTRA STRENGTH [Suspect]
     Active Substance: ACETAMINOPHEN
     Indication: HEADACHE
     Dosage: LAST NIGHT
     Route: 048
     Dates: start: 20160329

REACTIONS (3)
  - Product solubility abnormal [Unknown]
  - Incorrect dose administered [Unknown]
  - Medication residue present [Unknown]

NARRATIVE: CASE EVENT DATE: 20160329
